FAERS Safety Report 7504598-6 (Version None)
Quarter: 2011Q2

REPORT INFORMATION
  Report Type: 
  Country: None (occurrence: None)
  Receive Date: 20110525
  Receipt Date: 20110317
  Transmission Date: 20111010
  Serious: Yes (Disabling)
  Sender: FDA-Public Use
  Company Number: US-KINGPHARMUSA00001-K201100296

PATIENT
  Sex: Female
  Weight: 63.492 kg

DRUGS (3)
  1. TAPAZOLE [Suspect]
     Indication: BASEDOW'S DISEASE
     Dosage: 10 MG, TID
     Route: 048
     Dates: start: 20110211, end: 20110301
  2. TAPAZOLE [Suspect]
     Dosage: UNK
     Route: 048
     Dates: start: 20110301
  3. BYSTOLIC [Concomitant]
     Indication: HYPERTENSION

REACTIONS (1)
  - AGEUSIA [None]
